FAERS Safety Report 5492798-9 (Version None)
Quarter: 2007Q4

REPORT INFORMATION
  Report Type: 
  Country: None (occurrence: None)
  Receive Date: 20071019
  Receipt Date: 20071005
  Transmission Date: 20080405
  Serious: Yes (Hospitalization)
  Sender: FDA-Public Use
  Company Number: 220001N07FRA

PATIENT
  Age: 30 Year
  Sex: Male
  Weight: 70 kg

DRUGS (9)
  1. SAIZEN [Suspect]
     Indication: HYPOPITUITARISM
     Dosage: SEE IMAGE
     Route: 058
     Dates: start: 20040611, end: 20040715
  2. SAIZEN [Suspect]
     Indication: HYPOPITUITARISM
     Dosage: SEE IMAGE
     Route: 058
     Dates: start: 20040716, end: 20040829
  3. SAIZEN [Suspect]
     Indication: HYPOPITUITARISM
     Dosage: SEE IMAGE
     Route: 058
     Dates: start: 20040830, end: 20050221
  4. SAIZEN [Suspect]
     Indication: HYPOPITUITARISM
     Dosage: SEE IMAGE
     Route: 058
     Dates: start: 20050222
  5. LEVOTHYROXINE SODIUM [Concomitant]
  6. DESMOPRESSIN ACETATE [Concomitant]
  7. ANDROTARDYL (TESTOSTERONE ENANTATE) [Concomitant]
  8. DEPAKENE [Concomitant]
  9. HYDROCORTISONE [Concomitant]

REACTIONS (3)
  - ADRENAL INSUFFICIENCY [None]
  - FOOD POISONING [None]
  - PYREXIA [None]
